FAERS Safety Report 5417897-9 (Version None)
Quarter: 2007Q3

REPORT INFORMATION
  Report Type: 
  Country: None (occurrence: None)
  Receive Date: 20070817
  Receipt Date: 20070807
  Transmission Date: 20080115
  Serious: Yes (Other)
  Sender: FDA-Public Use
  Company Number: CA-JNJFOC-20070801601

PATIENT

DRUGS (3)
  1. REMICADE [Suspect]
     Dosage: PATIENT HAS RECEIVED 3 DOSES OF REMICADE
     Route: 042
  2. REMICADE [Suspect]
     Indication: CROHN'S DISEASE
     Dosage: TWO INFUSIONS ON UNSPECIFIED DATES.
     Route: 042
  3. PREDNISONE [Concomitant]

REACTIONS (3)
  - ANAEMIA [None]
  - HYPOAESTHESIA [None]
  - HYPOAESTHESIA ORAL [None]
